FAERS Safety Report 17183358 (Version 2)
Quarter: 2020Q2

REPORT INFORMATION
  Report Type: Report from Study
  Country: FR (occurrence: FR)
  Receive Date: 20191220
  Receipt Date: 20200612
  Transmission Date: 20200713
  Serious: Yes (Hospitalization)
  Sender: FDA-Public Use
  Company Number: FR-ROCHE-2503747

PATIENT

DRUGS (9)
  1. PREDNISONE. [Suspect]
     Active Substance: PREDNISONE
     Indication: ANTI-NEUTROPHIL CYTOPLASMIC ANTIBODY POSITIVE VASCULITIS
     Dosage: MEDIAN DOSE: 5 MG.
     Route: 065
  2. METHYLPREDNISOLONE. [Concomitant]
     Active Substance: METHYLPREDNISOLONE
     Indication: PREMEDICATION
     Route: 042
  3. CYCLOPHOSPHAMIDE. [Suspect]
     Active Substance: CYCLOPHOSPHAMIDE
     Indication: ANTI-NEUTROPHIL CYTOPLASMIC ANTIBODY POSITIVE VASCULITIS
     Route: 065
  4. ACETAMINOPHEN. [Concomitant]
     Active Substance: ACETAMINOPHEN
     Indication: PREMEDICATION
     Route: 065
  5. PENTAMIDINE [Concomitant]
     Active Substance: PENTAMIDINE
     Indication: PREMEDICATION
     Route: 065
  6. METHOTREXATE. [Suspect]
     Active Substance: METHOTREXATE
     Indication: ANTI-NEUTROPHIL CYTOPLASMIC ANTIBODY POSITIVE VASCULITIS
     Route: 065
  7. SULFAMETHOXAZOLE/TRIMETHOPRIM [Concomitant]
     Active Substance: SULFAMETHOXAZOLE\TRIMETHOPRIM
     Indication: PREMEDICATION
     Dosage: 400/80 MG
     Route: 065
  8. RITUXIMAB. [Suspect]
     Active Substance: RITUXIMAB
     Indication: ANTI-NEUTROPHIL CYTOPLASMIC ANTIBODY POSITIVE VASCULITIS
     Route: 041
  9. DEXCHLORPHENIRAMINE [Concomitant]
     Active Substance: DEXCHLORPHENIRAMINE
     Indication: PREMEDICATION
     Route: 065

REACTIONS (19)
  - Bronchitis [Unknown]
  - Pyelonephritis [Unknown]
  - Pulmonary embolism [Unknown]
  - Spinal fracture [Unknown]
  - Laryngeal stenosis [Unknown]
  - Prostatitis [Unknown]
  - Cerebrovascular accident [Unknown]
  - Intraductal papillary mucinous neoplasm [Unknown]
  - Diarrhoea [Unknown]
  - Hip arthroplasty [Unknown]
  - Cholangitis [Unknown]
  - Febrile neutropenia [Unknown]
  - Pain [Unknown]
  - Thrombophlebitis [Unknown]
  - Ventricular tachycardia [Unknown]
  - Labyrinthine fistula [Unknown]
  - Septic shock [Unknown]
  - Meningitis borrelia [Unknown]
  - Pneumonia [Unknown]
